FAERS Safety Report 9904491 (Version 1)
Quarter: 2014Q1

REPORT INFORMATION
  Report Type: Report from Study
  Country: CA (occurrence: CA)
  Receive Date: 20140218
  Receipt Date: 20140218
  Transmission Date: 20141002
  Serious: Yes (Other)
  Sender: FDA-Public Use
  Company Number: CA-JNJFOC-20140208780

PATIENT
  Age: 38 Year
  Sex: Female
  Weight: 115.9 kg

DRUGS (3)
  1. REMICADE [Suspect]
     Indication: CROHN^S DISEASE
     Route: 042
     Dates: start: 20121231
  2. IMURAN [Concomitant]
     Route: 048
  3. VIT D [Concomitant]
     Route: 058

REACTIONS (5)
  - Thrombosis [Unknown]
  - Axillary pain [Unknown]
  - Pain [Unknown]
  - Painful respiration [Unknown]
  - Dyspnoea [Unknown]
